FAERS Safety Report 4846562-1 (Version None)
Quarter: 2005Q4

REPORT INFORMATION
  Report Type: 
  Country: None (occurrence: None)
  Receive Date: 20051202
  Receipt Date: 20051118
  Transmission Date: 20060501
  Serious: Yes (Hospitalization)
  Sender: FDA-Public Use
  Company Number: KII-2005-0019800

PATIENT
  Age: 18 Month
  Sex: Male

DRUGS (1)
  1. OXYCONTIN [Suspect]
     Indication: ACCIDENTAL EXPOSURE
     Dosage: SEE TEXT, ORAL
     Route: 048
     Dates: start: 20051019

REACTIONS (6)
  - ACCIDENTAL DRUG INTAKE BY CHILD [None]
  - BALANCE DISORDER [None]
  - DIFFICULTY IN WALKING [None]
  - LETHARGY [None]
  - SOMNOLENCE [None]
  - VOMITING [None]
